FAERS Safety Report 5029521-8 (Version None)
Quarter: 2006Q2

REPORT INFORMATION
  Report Type: 
  Country: None (occurrence: None)
  Receive Date: 20060620
  Receipt Date: 20051111
  Transmission Date: 20061013
  Serious: No
  Sender: FDA-Public Use
  Company Number: US-GLAXOSMITHKLINE-A0582650A

PATIENT
  Age: 70 Year
  Sex: Female

DRUGS (1)
  1. ZYBAN [Suspect]
     Route: 048

REACTIONS (1)
  - DRUG INEFFECTIVE [None]
